FAERS Safety Report 9962508 (Version 1)
Quarter: 2014Q1

REPORT INFORMATION
  Report Type: Spontaneous
  Country: US (occurrence: US)
  Receive Date: 20140305
  Receipt Date: 20140305
  Transmission Date: 20141002
  Serious: No
  Sender: FDA-Public Use
  Company Number: US-ABBVIE-13P-163-1116877-00

PATIENT
  Age: 38 Year
  Sex: Female
  Weight: 113.5 kg

DRUGS (3)
  1. HUMIRA [Suspect]
     Indication: COLITIS ULCERATIVE
     Dates: start: 201303
  2. LEVOTHYROXINE [Concomitant]
     Indication: THYROID DISORDER
     Dates: start: 201210
  3. AZATHIOPRINE [Concomitant]
     Indication: COLITIS ULCERATIVE
     Dates: start: 2009

REACTIONS (1)
  - Alopecia [Not Recovered/Not Resolved]
